FAERS Safety Report 9971638 (Version 2)
Quarter: 2013Q2

REPORT INFORMATION
  Report Type: Spontaneous
  Country: GB (occurrence: None)
  Receive Date: 20130206
  Receipt Date: 20130228
  Transmission Date: 20140414
  Serious: Yes (Other)
  Sender: FDA-Public Use
  Company Number: 2013-00141

PATIENT
  Age: 31 Year
  Sex: Male

DRUGS (6)
  1. LEVETIRACETAM [Suspect]
     Indication: EPILEPSY
     Dosage: UNKNOWN ( 1000 MG, UNKNOWN), ORAL
     Route: 048
     Dates: start: 2009
  2. CLOZAPINE [Suspect]
     Indication: SCHIZOPHRENIA
     Route: 048
     Dates: start: 20040428
  3. ISPAGHULA HUSK + PLANTAGO OVATA ( FYBOGEL) (UNKNOWN) [Concomitant]
  4. LANSOPRAZOLE ( UNKNOWN) [Concomitant]
  5. SIMVASTATIN (UNKNOWN) [Concomitant]
  6. VALPROIC ACID [Suspect]
     Indication: AFFECTIVE DISORDER
     Dosage: 1600 MG ( 800 MG, 2 IN 1 D) , ORAL
     Route: 048
     Dates: start: 2009

REACTIONS (6)
  - Anaemia [None]
  - Haemoglobin decreased [None]
  - Epilepsy [None]
  - Hyperpyrexia [None]
  - Neutropenia [None]
  - White blood cell count decreased [None]
